FAERS Safety Report 10426587 (Version 1)
Quarter: 2014Q3

REPORT INFORMATION
  Report Type: Spontaneous
  Country: US (occurrence: US)
  Receive Date: 20140903
  Receipt Date: 20140903
  Transmission Date: 20150326
  Serious: Yes (Hospitalization)
  Sender: FDA-Public Use
  Company Number: US-JNJFOC-20140823928

PATIENT
  Sex: Male

DRUGS (2)
  1. ALL OTHER THERAPEUTIC DRUGS [Concomitant]
     Active Substance: UNSPECIFIED INGREDIENT
  2. INVOKANA [Suspect]
     Active Substance: CANAGLIFLOZIN
     Indication: PRODUCT USED FOR UNKNOWN INDICATION

REACTIONS (3)
  - Gastrointestinal haemorrhage [Unknown]
  - Colectomy [Unknown]
  - Inflammation of wound [Unknown]
